FAERS Safety Report 21195336 (Version 2)
Quarter: 2022Q3

REPORT INFORMATION
  Report Type: Report from Study
  Country: CO (occurrence: CO)
  Receive Date: 20220810
  Receipt Date: 20220831
  Transmission Date: 20221027
  Serious: Yes (Hospitalization, Other)
  Sender: FDA-Public Use
  Company Number: CO-ASTELLAS-2022US028121

PATIENT
  Age: 43 Year
  Sex: Female

DRUGS (3)
  1. TACROLIMUS [Suspect]
     Active Substance: TACROLIMUS
     Indication: Renal transplant
     Route: 048
     Dates: start: 20120127, end: 2021
  2. TACROLIMUS [Suspect]
     Active Substance: TACROLIMUS
     Route: 048
     Dates: start: 2021
  3. LOSARTAN [Concomitant]
     Active Substance: LOSARTAN
     Indication: Product used for unknown indication
     Route: 065

REACTIONS (10)
  - Immunosuppressant drug level increased [Not Recovered/Not Resolved]
  - COVID-19 [Recovered/Resolved]
  - Hypertension [Unknown]
  - Urinary tract infection [Recovered/Resolved]
  - Laboratory test abnormal [Not Recovered/Not Resolved]
  - Proteinuria [Not Recovered/Not Resolved]
  - Headache [Recovered/Resolved]
  - Cough [Recovering/Resolving]
  - Vision blurred [Not Recovered/Not Resolved]
  - Kidney transplant rejection [Not Recovered/Not Resolved]

NARRATIVE: CASE EVENT DATE: 20200101
